FAERS Safety Report 5831475-9 (Version None)
Quarter: 2008Q3

REPORT INFORMATION
  Report Type: 
  Country: None (occurrence: None)
  Receive Date: 20080801
  Receipt Date: 20080721
  Transmission Date: 20090109
  Serious: Yes (Other)
  Sender: FDA-Public Use
  Company Number: US-PFIZER INC-2008061011

PATIENT
  Sex: Female
  Weight: 90.7 kg

DRUGS (3)
  1. LYRICA [Suspect]
     Indication: SURGERY
  2. LYRICA [Suspect]
     Indication: FIBROMYALGIA
  3. DRUG, UNSPECIFIED [Concomitant]

REACTIONS (8)
  - ASTHENIA [None]
  - DYSPNOEA [None]
  - DYSSTASIA [None]
  - FATIGUE [None]
  - HAEMOPTYSIS [None]
  - NECK PAIN [None]
  - OEDEMA PERIPHERAL [None]
  - VISION BLURRED [None]
